FAERS Safety Report 11381324 (Version 2)
Quarter: 2018Q1

REPORT INFORMATION
  Report Type: Report from Study
  Country: DE (occurrence: DE)
  Receive Date: 20150814
  Receipt Date: 20180126
  Transmission Date: 20180508
  Serious: Yes (Other)
  Sender: FDA-Public Use
  Company Number: DE-SA-CLOF-1001970

PATIENT
  Age: 39 Year
  Sex: Female

DRUGS (13)
  1. ACICLOVIR [Concomitant]
     Active Substance: ACYCLOVIR
     Indication: ANTIVIRAL PROPHYLAXIS
     Dosage: 5 MG/KG, QD?FROM DAY+1 UNTIL RECOVERY OF NEUTROPHILS
     Route: 065
  2. CLOFARABINE. [Suspect]
     Active Substance: CLOFARABINE
     Indication: MYELOPROLIFERATIVE NEOPLASM
     Dosage: 30 MG/M2, QD, ONE HOUR INFUSION
     Route: 041
  3. MYCOPHENOLATE MOFETIL. [Concomitant]
     Active Substance: MYCOPHENOLATE MOFETIL
     Indication: PROPHYLAXIS AGAINST GRAFT VERSUS HOST DISEASE
     Dosage: 10 MG/KG, TID?STARTING AT THE DAY OF TRANSPLANTATION, STOPPED AT DAY +50
     Route: 065
  4. ARA-C [Suspect]
     Active Substance: CYTARABINE
     Indication: CYTOREDUCTIVE SURGERY
     Dosage: 1000 MG/M2, QD, TWO HOUR INFUSION
     Route: 041
  5. CLOFARABINE. [Suspect]
     Active Substance: CLOFARABINE
     Indication: ACUTE MYELOID LEUKAEMIA
     Dosage: 30 MG/M2, QD, ONE HOUR INFUSION
     Route: 041
  6. CLOFARABINE. [Suspect]
     Active Substance: CLOFARABINE
     Indication: CYTOREDUCTIVE SURGERY
     Dosage: 30 MG/M2, QD, ONE HOUR INFUSION
     Route: 041
  7. LEVOFLOXACIN. [Concomitant]
     Active Substance: LEVOFLOXACIN
     Indication: ANTIBIOTIC PROPHYLAXIS
     Dosage: UNK UNK, UNK?WITH THE BEGINNING OF RIC UNTIL DAY +35
     Route: 065
  8. METRONIDAZOLE. [Concomitant]
     Active Substance: METRONIDAZOLE
     Indication: ANTIBIOTIC PROPHYLAXIS
     Dosage: UNK UNK, UNK
     Route: 065
  9. ENDOXAN [Suspect]
     Active Substance: CYCLOPHOSPHAMIDE
     Indication: BONE MARROW CONDITIONING REGIMEN
     Dosage: MG/KG, UNK
     Route: 065
  10. CICLOSPORIN [Concomitant]
     Active Substance: CYCLOSPORINE
     Indication: PROPHYLAXIS AGAINST GRAFT VERSUS HOST DISEASE
     Dosage: 120-150 NG/ML, UNK?FROM DAY -1 (TARGET TROUGH LEVEL: 120-150 NG/ML), TAPERED FROM DAYS +70 TO +90
     Route: 065
  11. FLUCONAZOLE. [Concomitant]
     Active Substance: FLUCONAZOLE
     Indication: ANTIFUNGAL PROPHYLAXIS
     Dosage: UNK UNK, UNK
     Route: 065
  12. ANTI-THYMOCYTE GLOBULIN (RABBIT) [Suspect]
     Active Substance: LAPINE T-LYMPHOCYTE IMMUNE GLOBULIN
     Indication: BONE MARROW CONDITIONING REGIMEN
     Dosage: UNK MG/KG, UNK
     Route: 065
  13. ARA-C [Suspect]
     Active Substance: CYTARABINE
     Indication: ACUTE MYELOID LEUKAEMIA
     Dosage: 1000 MG/M2, QD, TWO HOUR INFUSION
     Route: 041

REACTIONS (12)
  - Mucosal inflammation [Unknown]
  - Oedema [Unknown]
  - Alanine aminotransferase increased [Recovered/Resolved]
  - Nervous system disorder [Unknown]
  - Pyrexia [Unknown]
  - Endocrine disorder [Unknown]
  - Vomiting [Unknown]
  - Haematotoxicity [Unknown]
  - Alopecia [Unknown]
  - Aspartate aminotransferase increased [Recovered/Resolved]
  - Decreased appetite [Unknown]
  - Nausea [Unknown]
